FAERS Safety Report 19471294 (Version 1)
Quarter: 2021Q2

REPORT INFORMATION
  Report Type: Spontaneous
  Country: US (occurrence: US)
  Receive Date: 20210628
  Receipt Date: 20210628
  Transmission Date: 20210717
  Serious: No
  Sender: FDA-Public Use
  Company Number: None

PATIENT
  Age: 76 Year
  Sex: Male
  Weight: 102.15 kg

DRUGS (17)
  1. VENLAFAXINE [Concomitant]
     Active Substance: VENLAFAXINE HYDROCHLORIDE
  2. OMEPRAZOLE. [Concomitant]
     Active Substance: OMEPRAZOLE
  3. PREVAGEN [Concomitant]
     Active Substance: DIETARY SUPPLEMENT
  4. POLYETHYLENE GLYCOL [Concomitant]
     Active Substance: POLYETHYLENE GLYCOLS
  5. ROPINIROLE. [Concomitant]
     Active Substance: ROPINIROLE
  6. HCTZ [Concomitant]
     Active Substance: HYDROCHLOROTHIAZIDE
  7. LISINOPRIL. [Concomitant]
     Active Substance: LISINOPRIL
  8. ASPIRIN. [Concomitant]
     Active Substance: ASPIRIN
  9. TRAZODONE [Concomitant]
     Active Substance: TRAZODONE HYDROCHLORIDE
  10. BUPRENORPHINE AND NALOXONE [Suspect]
     Active Substance: BUPRENORPHINE HYDROCHLORIDE\NALOXONE HYDROCHLORIDE
     Indication: PAIN
     Dosage: ?          QUANTITY:1 TABLET(S);?
     Route: 060
  11. GABAPENTIN. [Concomitant]
     Active Substance: GABAPENTIN
  12. LORATADINE. [Concomitant]
     Active Substance: LORATADINE
  13. MELOXICAM. [Concomitant]
     Active Substance: MELOXICAM
  14. CETIRIZINE [Concomitant]
     Active Substance: CETIRIZINE HYDROCHLORIDE
  15. DOCUSATE [Concomitant]
     Active Substance: DOCUSATE
  16. STOOL SOFTENER (DOCUSATE) [Concomitant]
     Active Substance: DOCUSATE
  17. BIOTINE [Concomitant]

REACTIONS (11)
  - Blister [None]
  - Coordination abnormal [None]
  - Gait disturbance [None]
  - Oral pain [None]
  - Dyspnoea [None]
  - Pyrexia [None]
  - Disturbance in attention [None]
  - Balance disorder [None]
  - Headache [None]
  - Dry mouth [None]
  - Lip swelling [None]

NARRATIVE: CASE EVENT DATE: 20210415
